FAERS Safety Report 10149224 (Version 1)
Quarter: 2014Q2

REPORT INFORMATION
  Report Type: Spontaneous
  Country: US (occurrence: None)
  Receive Date: 20140501
  Receipt Date: 20140501
  Transmission Date: 20141212
  Serious: Yes (Other)
  Sender: FDA-Public Use
  Company Number: None

PATIENT
  Age: 63 Year
  Sex: Male

DRUGS (1)
  1. ENBREL 50 MG [Suspect]
     Indication: PRODUCT USED FOR UNKNOWN INDICATION
     Dosage: ENBREL 50 MG SUBCUTANEOUS 057 INJECTABLE WEEKLY
     Route: 058
     Dates: start: 20140129

REACTIONS (5)
  - Fatigue [None]
  - Abdominal pain [None]
  - Diarrhoea [None]
  - Hypersomnia [None]
  - Anaemia [None]
